FAERS Safety Report 14424005 (Version 1)
Quarter: 2018Q1

REPORT INFORMATION
  Report Type: Spontaneous
  Country: US (occurrence: US)
  Receive Date: 20180123
  Receipt Date: 20180123
  Transmission Date: 20180509
  Serious: No
  Sender: FDA-Public Use
  Company Number: US-TEVA-2018-US-846846

PATIENT
  Age: 73 Year
  Sex: Female

DRUGS (6)
  1. GUAIFENESIN. [Concomitant]
     Active Substance: GUAIFENESIN
     Route: 065
  2. CAPECITABINE. [Suspect]
     Active Substance: CAPECITABINE
     Indication: BREAST CANCER METASTATIC
     Dosage: 2500MG TWICE DAILY FOR 14 DAYS OF EVERY 21-DAYS CYCLE
     Route: 065
  3. ACETAMINOPHEN. [Concomitant]
     Active Substance: ACETAMINOPHEN
     Dosage: AS NEEDED
     Route: 065
  4. ZOLEDRONIC ACID. [Concomitant]
     Active Substance: ZOLEDRONIC ACID
     Indication: BREAST CANCER METASTATIC
     Route: 042
  5. CALCIUM/VITAMIN-D [Concomitant]
     Route: 065
  6. ONDANSETRON [Concomitant]
     Active Substance: ONDANSETRON
     Route: 065

REACTIONS (2)
  - Photosensitivity reaction [Recovered/Resolved]
  - Lichenoid keratosis [Recovered/Resolved]
